FAERS Safety Report 19899118 (Version 1)
Quarter: 2021Q3

REPORT INFORMATION
  Report Type: Spontaneous
  Country: IN (occurrence: IN)
  Receive Date: 20210929
  Receipt Date: 20210929
  Transmission Date: 20211014
  Serious: Yes (Hospitalization, Congenital Anomaly, Other)
  Sender: FDA-Public Use
  Company Number: IN-ANIPHARMA-2021-IN-000210

PATIENT
  Age: 26 Day
  Sex: Male
  Weight: 2.4 kg

DRUGS (3)
  1. FLUOXETINE HYDROCHLORIDE (NON?SPECIFIC) [Suspect]
     Active Substance: FLUOXETINE HYDROCHLORIDE
     Indication: PRODUCT USED FOR UNKNOWN INDICATION
     Dosage: 40 MG DAILY
     Route: 015
  2. FOLIC ACID. [Concomitant]
     Active Substance: FOLIC ACID
     Route: 015
  3. PROMETHAZINE [Concomitant]
     Active Substance: PROMETHAZINE HYDROCHLORIDE
     Dosage: 50 MG EVERY EVENING
     Route: 015

REACTIONS (2)
  - Foetal exposure during pregnancy [Recovered/Resolved]
  - Pyloric stenosis [Recovered/Resolved]
